FAERS Safety Report 8261200-6 (Version None)
Quarter: 2012Q2

REPORT INFORMATION
  Report Type: 
  Country: None (occurrence: None)
  Receive Date: 20120405
  Receipt Date: 20120403
  Transmission Date: 20120825
  Serious: Yes (Hospitalization)
  Sender: FDA-Public Use
  Company Number: PHHO2011PT09289

PATIENT
  Sex: Male
  Weight: 70 kg

DRUGS (1)
  1. FTY [Suspect]
     Indication: MULTIPLE SCLEROSIS RELAPSE
     Dosage: 0.5 MG, QD
     Route: 048
     Dates: start: 20110330, end: 20110527

REACTIONS (3)
  - NO THERAPEUTIC RESPONSE [None]
  - LYMPHOPENIA [None]
  - PYREXIA [None]
